FAERS Safety Report 15724884 (Version 2)
Quarter: 2019Q2

REPORT INFORMATION
  Report Type: Report from Study
  Country: US (occurrence: US)
  Receive Date: 20181214
  Receipt Date: 20190621
  Transmission Date: 20190711
  Serious: Yes (Other)
  Sender: FDA-Public Use
  Company Number: US-MYLANLABS-2018M1087812

PATIENT
  Age: 35 Year
  Sex: Female
  Weight: 49.43 kg

DRUGS (1)
  1. GLATIRAMER ACETATE INJECTION [Suspect]
     Active Substance: GLATIRAMER ACETATE
     Indication: RELAPSING-REMITTING MULTIPLE SCLEROSIS
     Dosage: 40 MILLIGRAM, 3XW
     Route: 058
     Dates: start: 20181115

REACTIONS (5)
  - Blindness [Unknown]
  - Hypersensitivity [Unknown]
  - Injection site pain [Unknown]
  - Deafness [Unknown]
  - Syncope [Unknown]

NARRATIVE: CASE EVENT DATE: 201811
